FAERS Safety Report 4870237-6 (Version None)
Quarter: 2005Q4

REPORT INFORMATION
  Report Type: 
  Country: None (occurrence: None)
  Receive Date: 20051228
  Receipt Date: 20051130
  Transmission Date: 20060501
  Serious: Yes (Hospitalization)
  Sender: FDA-Public Use
  Company Number: 20052652

PATIENT
  Sex: Male

DRUGS (1)
  1. LIORESAL [Suspect]
     Indication: MUSCLE SPASTICITY
     Dosage: DAILY, INTRATHECAL
     Route: 037

REACTIONS (11)
  - ABDOMINAL DISTENSION [None]
  - CATHETER RELATED COMPLICATION [None]
  - DRUG INEFFECTIVE [None]
  - DRUG WITHDRAWAL SYNDROME [None]
  - EATING DISORDER [None]
  - FEEDING DISORDER [None]
  - GASTROINTESTINAL DISORDER [None]
  - MUSCLE SPASTICITY [None]
  - PYREXIA [None]
  - URINARY RETENTION [None]
  - WEIGHT DECREASED [None]
